FAERS Safety Report 20590315 (Version 3)
Quarter: 2022Q2

REPORT INFORMATION
  Report Type: Spontaneous
  Country: AU (occurrence: AU)
  Receive Date: 20220314
  Receipt Date: 20220425
  Transmission Date: 20220721
  Serious: Yes (Other)
  Sender: FDA-Public Use
  Company Number: AU-MYLANLABS-2022M1018068

PATIENT
  Age: 41 Year
  Sex: Female

DRUGS (21)
  1. CLOZARIL [Suspect]
     Active Substance: CLOZAPINE
     Indication: Schizophrenia
     Dosage: UNK
     Route: 048
     Dates: start: 20051007
  2. CLOZARIL [Suspect]
     Active Substance: CLOZAPINE
     Dosage: 350-450MG
     Dates: start: 2005, end: 202008
  3. CLOZARIL [Suspect]
     Active Substance: CLOZAPINE
     Dosage: 450 MILLIGRAM
     Route: 048
     Dates: start: 20051007
  4. CLOZARIL [Suspect]
     Active Substance: CLOZAPINE
     Dosage: UNK
     Route: 048
     Dates: start: 200509
  5. CLOZARIL [Suspect]
     Active Substance: CLOZAPINE
     Dosage: 4 DOSAGE FORM, PM (NOCTE)
     Route: 048
     Dates: start: 20051007
  6. CLOZARIL [Suspect]
     Active Substance: CLOZAPINE
     Indication: Schizophrenia
     Dosage: 1 DOSAGE FORM, AM (MANE)
     Route: 048
     Dates: start: 20051007
  7. BISOPROLOL [Concomitant]
     Active Substance: BISOPROLOL
     Dosage: UNK
  8. ARIPIPRAZOLE [Concomitant]
     Active Substance: ARIPIPRAZOLE
     Dosage: 1 DOSAGE FORM, AM
  9. VALPROATE SODIUM [Concomitant]
     Active Substance: VALPROATE SODIUM
     Dosage: 1 DOSAGE FORM, BID
  10. Coloxyl [Concomitant]
     Dosage: UNK, PM (1-2 BEFORE BED)
  11. SCOPOLAMINE HYDROBROMIDE [Concomitant]
     Active Substance: SCOPOLAMINE HYDROBROMIDE
     Dosage: 0.5 DOSAGE FORM, QD
  12. ASCORBIC ACID\NIACINAMIDE\PYRIDOXINE HYDROCHLORIDE\RIBOFLAVIN\THIAMINE [Concomitant]
     Active Substance: ASCORBIC ACID\NIACINAMIDE\PYRIDOXINE HYDROCHLORIDE\RIBOFLAVIN\THIAMINE HYDROCHLORIDE
     Dosage: UNK, QD (1 TABLET)
  13. NORETHINDRONE [Concomitant]
     Active Substance: NORETHINDRONE
     Dosage: 1 DOSAGE FORM, QD
  14. ACETAMINOPHEN [Concomitant]
     Active Substance: ACETAMINOPHEN
     Indication: Pain
     Dosage: 2 DOSAGE FORM, PRN (UP TO QDS)
  15. ACETAMINOPHEN [Concomitant]
     Active Substance: ACETAMINOPHEN
     Indication: Pyrexia
  16. OXYBUTYNIN [Concomitant]
     Active Substance: OXYBUTYNIN
     Dosage: 0.5 DOSAGE FORM, BID
  17. PARACHOC [Concomitant]
     Indication: Constipation
     Dosage: UNK, BID PRN UP TO BID
  18. BETADINE [Concomitant]
     Active Substance: POVIDONE-IODINE
     Dosage: UNK, TID
  19. BETAMETHASONE VALERATE [Concomitant]
     Active Substance: BETAMETHASONE VALERATE
     Dosage: UNK, BID (IF NEEDED)
  20. POLYETHYLENE GLYCOL 3350 [Concomitant]
     Active Substance: POLYETHYLENE GLYCOL 3350
     Dosage: UNK
  21. Macrolax [Concomitant]
     Dosage: UNK, QD

REACTIONS (9)
  - Cardiomyopathy [Unknown]
  - Mitral valve incompetence [Unknown]
  - Tricuspid valve incompetence [Unknown]
  - Tachycardia [Unknown]
  - Constipation [Unknown]
  - Alanine aminotransferase increased [Unknown]
  - Blood creatine phosphokinase increased [Unknown]
  - Blood urea increased [Unknown]
  - Glomerular filtration rate decreased [Unknown]

NARRATIVE: CASE EVENT DATE: 20180411
